FAERS Safety Report 7928518-5 (Version None)
Quarter: 2011Q4

REPORT INFORMATION
  Report Type: 
  Country: None (occurrence: None)
  Receive Date: 20111118
  Receipt Date: 20111108
  Transmission Date: 20120403
  Serious: Yes (Disabling, Other)
  Sender: FDA-Public Use
  Company Number: CA-ELI_LILLY_AND_COMPANY-CA201111002398

PATIENT
  Age: 58 Year
  Sex: Female
  Weight: 71.655 kg

DRUGS (3)
  1. CRESTOR [Concomitant]
     Dosage: UNK
     Route: 048
  2. CYMBALTA [Suspect]
     Dosage: 60 MG, QD
  3. HYDROMORPHONE HCL [Concomitant]
     Dosage: UNK
     Route: 048

REACTIONS (8)
  - YAWNING [None]
  - AMNESIA [None]
  - NAUSEA [None]
  - PARAESTHESIA [None]
  - CONDITION AGGRAVATED [None]
  - DIZZINESS [None]
  - NEUROPATHY PERIPHERAL [None]
  - FIBROMYALGIA [None]
